FAERS Safety Report 6043811-1 (Version None)
Quarter: 2009Q1

REPORT INFORMATION
  Report Type: 
  Country: None (occurrence: None)
  Receive Date: 20090114
  Receipt Date: 20010517
  Transmission Date: 20090719
  Serious: Yes (Hospitalization)
  Sender: FDA-Public Use
  Company Number: FON_00024_2008

PATIENT
  Sex: Female
  Weight: 18.0078 kg

DRUGS (2)
  1. ROCALTROL [Suspect]
     Indication: DRUG USE FOR UNKNOWN INDICATION
     Dosage: (1.6 UG QD ORAL)
     Route: 048
     Dates: start: 20010201, end: 20010517
  2. ROCALTROL [Suspect]
     Indication: DRUG USE FOR UNKNOWN INDICATION
     Dosage: (0.15 UG QD ORAL)
     Route: 048
     Dates: end: 20010201

REACTIONS (2)
  - HYPERCALCAEMIA [None]
  - VOMITING [None]
